FAERS Safety Report 4989576-3 (Version None)
Quarter: 2006Q2

REPORT INFORMATION
  Report Type: 
  Country: None (occurrence: None)
  Receive Date: 20060502
  Receipt Date: 20060104
  Transmission Date: 20061013
  Serious: Yes (Death, Hospitalization)
  Sender: FDA-Public Use
  Company Number: US-MERCK-0601USA00536

PATIENT
  Age: 56 Year
  Sex: Male

DRUGS (1)
  1. VIOXX [Suspect]
     Indication: BACK PAIN
     Route: 048

REACTIONS (12)
  - ARTERIOSCLEROSIS [None]
  - CARDIAC FAILURE CONGESTIVE [None]
  - CELLULITIS [None]
  - DIABETES MELLITUS INSULIN-DEPENDENT [None]
  - DIABETIC FOOT INFECTION [None]
  - DRUG HYPERSENSITIVITY [None]
  - LYMPHADENOPATHY MEDIASTINAL [None]
  - MYOCARDIAL INFARCTION [None]
  - OSTEOMYELITIS [None]
  - PNEUMONIA [None]
  - VENTRICULAR FIBRILLATION [None]
  - VENTRICULAR TACHYCARDIA [None]
